FAERS Safety Report 14447393 (Version 1)
Quarter: 2018Q1

REPORT INFORMATION
  Report Type: Report from Study
  Country: US (occurrence: US)
  Receive Date: 20180126
  Receipt Date: 20180126
  Transmission Date: 20180509
  Serious: Yes (Other)
  Sender: FDA-Public Use
  Company Number: US-BAYER-2017-110846

PATIENT
  Age: 31 Year
  Sex: Female

DRUGS (12)
  1. VINBLASTINE [Suspect]
     Active Substance: VINBLASTINE
     Dosage: FULL DOSE EVERY 2 WEEKS FOR FIVE CYCLES
  2. PRENATAL VITAMINS [Concomitant]
     Active Substance: VITAMINS
  3. FERROUS SULFATE. [Concomitant]
     Active Substance: FERROUS SULFATE
  4. ACETAMINOPHEN. [Concomitant]
     Active Substance: ACETAMINOPHEN
  5. DOXORUBICIN [Suspect]
     Active Substance: DOXORUBICIN
     Dosage: FULL DOSE EVERY 2 WEEKS FOR FIVE CYCLES
  6. DEXAMETHASONE. [Concomitant]
     Active Substance: DEXAMETHASONE
     Dosage: UNK
  7. FOLIC ACID. [Concomitant]
     Active Substance: FOLIC ACID
  8. AMOXICILLIN SODIUM W/CLAVULANATE POTASSIUM [Concomitant]
     Active Substance: AMOXICILLIN\CLAVULANATE POTASSIUM
     Indication: COUGH
  9. OXYCODONE [Concomitant]
     Active Substance: OXYCODONE
  10. DACARBAZINE (DTIC) [Suspect]
     Active Substance: DACARBAZINE
     Indication: HODGKIN^S DISEASE
     Dosage: FULL DOSE EVERY 2 WEEKS FOR FIVE CYCLES
     Route: 042
  11. BLEOMYCIN [Suspect]
     Active Substance: BLEOMYCIN SULFATE
     Dosage: FULL DOSE EVERY 2 WEEKS FOR FIVE CYCLES
  12. ONDANSETRON [Concomitant]
     Active Substance: ONDANSETRON

REACTIONS (3)
  - Postpartum haemorrhage [None]
  - Failed trial of labour [None]
  - Maternal exposure during pregnancy [None]
